FAERS Safety Report 9927910 (Version 1)
Quarter: 2014Q1

REPORT INFORMATION
  Report Type: Spontaneous
  Country: US (occurrence: None)
  Receive Date: 20140226
  Receipt Date: 20140226
  Transmission Date: 20141002
  Serious: Yes (Other)
  Sender: FDA-Public Use
  Company Number: None

PATIENT
  Age: 80 Year
  Sex: Female
  Weight: 54.43 kg

DRUGS (5)
  1. GAMUNEX-C [Suspect]
     Indication: CHRONIC INFLAMMATORY DEMYELINATING POLYRADICULONEUROPATHY
     Route: 042
  2. GAMUNEX-C [Suspect]
     Dosage: LOT 26NN1851?EXP DATE 6/22/16
  3. BENADRYL [Concomitant]
  4. TYLENOL [Concomitant]
  5. IVIG [Concomitant]

REACTIONS (1)
  - Rash [None]
